FAERS Safety Report 9226159 (Version 1)
Quarter: 2013Q2

REPORT INFORMATION
  Report Type: Spontaneous
  Country: US (occurrence: US)
  Receive Date: 20130411
  Receipt Date: 20130411
  Transmission Date: 20140414
  Serious: No
  Sender: FDA-Public Use
  Company Number: US-ASTRAZENECA-2013SE20334

PATIENT
  Sex: Female

DRUGS (2)
  1. SYMBICORT [Suspect]
     Indication: ASTHMA
     Dosage: 160/4.5 MCG 2 PUFFS BID
     Route: 055
     Dates: end: 201302
  2. ADVAIR [Concomitant]

REACTIONS (3)
  - Wheezing [Unknown]
  - Dyspnoea [Unknown]
  - Oral candidiasis [Unknown]
